FAERS Safety Report 9423276 (Version 3)
Quarter: 2013Q3

REPORT INFORMATION
  Report Type: Spontaneous
  Country: US (occurrence: US)
  Receive Date: 20130726
  Receipt Date: 20130820
  Transmission Date: 20140515
  Serious: No
  Sender: FDA-Public Use
  Company Number: US-TEVA-421564USA

PATIENT
  Age: 18 Year
  Sex: Female
  Weight: 68.55 kg

DRUGS (6)
  1. PARAGARD 380A [Suspect]
     Indication: CONTRACEPTION
     Route: 015
     Dates: start: 20130705, end: 20130718
  2. PARAGARD 380A [Suspect]
     Route: 015
     Dates: start: 20130718
  3. WELLBUTRIN [Concomitant]
     Indication: DEPRESSION
  4. LEXAPRO [Concomitant]
     Indication: DEPRESSION
  5. ATIVAN [Concomitant]
     Indication: ANXIETY
  6. QVAR [Concomitant]
     Indication: ASTHMA

REACTIONS (1)
  - Device expulsion [Recovered/Resolved]
